FAERS Safety Report 10144042 (Version 6)
Quarter: 2018Q2

REPORT INFORMATION
  Report Type: Report from Study
  Country: None (occurrence: US)
  Receive Date: 20140430
  Receipt Date: 20180615
  Transmission Date: 20180711
  Serious: Yes (Hospitalization, Disabling, Other)
  Sender: FDA-Public Use
  Company Number: US-ABBVIE-14P-163-1228144-00

PATIENT
  Sex: Female
  Weight: 72.64 kg

DRUGS (6)
  1. PLAVIX [Suspect]
     Active Substance: CLOPIDOGREL BISULFATE
     Indication: CORONARY ARTERY OCCLUSION
     Route: 065
     Dates: start: 2011
  2. URISPAS [Concomitant]
     Active Substance: FLAVOXATE HYDROCHLORIDE
     Indication: BLADDER SPASM
  3. HUMIRA [Suspect]
     Active Substance: ADALIMUMAB
     Indication: RHEUMATOID ARTHRITIS
     Route: 058
     Dates: start: 2002, end: 200411
  4. HUMIRA [Suspect]
     Active Substance: ADALIMUMAB
     Route: 058
     Dates: start: 200601, end: 201106
  5. HUMIRA [Suspect]
     Active Substance: ADALIMUMAB
     Route: 058
     Dates: start: 201108
  6. FORTEO [Concomitant]
     Active Substance: TERIPARATIDE
     Indication: OSTEOPOROSIS

REACTIONS (21)
  - Post procedural haematoma [Recovered/Resolved]
  - Joint effusion [Recovered/Resolved]
  - Gait disturbance [Not Recovered/Not Resolved]
  - Radius fracture [Recovered/Resolved]
  - Coronary artery occlusion [Unknown]
  - Platelet count decreased [Unknown]
  - Post procedural complication [Recovered/Resolved]
  - Rheumatoid arthritis [Unknown]
  - Aortic valve stenosis [Unknown]
  - Goitre [Recovered/Resolved]
  - Bone operation [Unknown]
  - Hypertension [Not Recovered/Not Resolved]
  - Lower limb fracture [Recovered/Resolved with Sequelae]
  - Fibula fracture [Recovered/Resolved]
  - Tibia fracture [Recovered/Resolved]
  - Dyspnoea [Recovered/Resolved]
  - Fall [Recovered/Resolved with Sequelae]
  - Coronary artery stenosis [Recovered/Resolved]
  - Arthrodesis [Unknown]
  - Benign neoplasm of thyroid gland [Recovered/Resolved]
  - Hip arthroplasty [Unknown]

NARRATIVE: CASE EVENT DATE: 2004
